FAERS Safety Report 10172528 (Version 1)
Quarter: 2014Q2

REPORT INFORMATION
  Report Type: Spontaneous
  Country: US (occurrence: US)
  Receive Date: 20140515
  Receipt Date: 20140515
  Transmission Date: 20141212
  Serious: No
  Sender: FDA-Public Use
  Company Number: US-B.I. PHARMACEUTICALS,INC./RIDGEFIELD-2014-BI-20192BP

PATIENT
  Age: 68 Year
  Sex: Male
  Weight: 52 kg

DRUGS (5)
  1. PRADAXA [Suspect]
     Indication: PRODUCT USED FOR UNKNOWN INDICATION
     Dosage: 150 MG
     Route: 048
     Dates: start: 201401
  2. POTASSIUM CHLORIDE [Concomitant]
     Dosage: 20 MG
     Route: 048
  3. CREON [Concomitant]
     Dosage: STRENGTH: 48000 UNITS; DAILY DOSE: 96000 UNITS
     Route: 048
  4. FLUCONAZOLE [Concomitant]
     Indication: COCCIDIOIDOMYCOSIS
     Dosage: 40 MG
     Route: 048
  5. FUROSEMIDE [Concomitant]
     Dosage: 20 MG
     Route: 048

REACTIONS (5)
  - Hypoacusis [Not Recovered/Not Resolved]
  - Nasal congestion [Not Recovered/Not Resolved]
  - Cough [Not Recovered/Not Resolved]
  - Dysphonia [Not Recovered/Not Resolved]
  - Epistaxis [Not Recovered/Not Resolved]
